FAERS Safety Report 13678399 (Version 1)
Quarter: 2017Q2

REPORT INFORMATION
  Report Type: Spontaneous
  Country: US (occurrence: US)
  Receive Date: 20170621
  Receipt Date: 20170621
  Transmission Date: 20170830
  Serious: Yes (Other)
  Sender: FDA-Public Use
  Company Number: None

PATIENT
  Age: 39 Year
  Sex: Female
  Weight: 50.4 kg

DRUGS (4)
  1. EXCEDRIN [Concomitant]
     Active Substance: ACETAMINOPHEN\ASPIRIN\CAFFEINE
  2. CREST BAKING SODA AND PEROXIDE WHITENING WITH TARTAR PROTECTION [Suspect]
     Active Substance: SODIUM FLUORIDE
     Indication: TOOTH DISCOLOURATION
     Dates: start: 20170612, end: 20170617
  3. ZYRTEC [Concomitant]
     Active Substance: CETIRIZINE HYDROCHLORIDE
  4. ADVIL [Concomitant]
     Active Substance: IBUPROFEN

REACTIONS (5)
  - Mouth ulceration [None]
  - Skin discolouration [None]
  - Tongue ulceration [None]
  - Pain [None]
  - Burning sensation [None]

NARRATIVE: CASE EVENT DATE: 20170612
